FAERS Safety Report 26150076 (Version 1)
Quarter: 2025Q4

REPORT INFORMATION
  Report Type: Spontaneous
  Country: US (occurrence: US)
  Receive Date: 20251212
  Receipt Date: 20251212
  Transmission Date: 20260118
  Serious: No
  Sender: SANDOZ
  Company Number: US-SANDOZ-SDZ2025US093992

PATIENT
  Sex: Male

DRUGS (1)
  1. HYRIMOZ [Suspect]
     Active Substance: ADALIMUMAB-ADAZ
     Indication: Product used for unknown indication
     Dosage: Q2W,40MG(PREFILLED PEN)
     Route: 058

REACTIONS (3)
  - Circumstance or information capable of leading to device use error [Unknown]
  - Product contamination physical [Unknown]
  - Device leakage [Unknown]
